FAERS Safety Report 5360747-X (Version None)
Quarter: 2007Q2

REPORT INFORMATION
  Report Type: 
  Country: None (occurrence: None)
  Receive Date: 20070618
  Receipt Date: 20070611
  Transmission Date: 20071010
  Serious: Yes (Other)
  Sender: FDA-Public Use
  Company Number: JP-ASTRAZENECA-2007AP03612

PATIENT
  Age: 47 Year

DRUGS (1)
  1. XYLOCAINE [Suspect]
     Indication: EPIDURAL ANAESTHESIA
     Route: 008
     Dates: start: 20070525, end: 20070525

REACTIONS (3)
  - ALTERED STATE OF CONSCIOUSNESS [None]
  - EYE DISORDER [None]
  - MUSCLE SPASMS [None]
